FAERS Safety Report 5747093-7 (Version None)
Quarter: 2008Q2

REPORT INFORMATION
  Report Type: 
  Country: None (occurrence: None)
  Receive Date: 20080522
  Receipt Date: 20080424
  Transmission Date: 20081010
  Serious: No
  Sender: FDA-Public Use
  Company Number: US-BOEHRINGER INGELHEIM GMBH, GERMANY-2008-BP-06523BP

PATIENT
  Age: 83 Year
  Sex: Female

DRUGS (7)
  1. SPIRIVA [Suspect]
     Indication: CHRONIC OBSTRUCTIVE PULMONARY DISEASE
     Route: 055
     Dates: start: 20080101
  2. LEVOTHYROXINE SODIUM [Concomitant]
  3. HYDROCHLOROTHIAZIDE [Concomitant]
  4. FELODIPINE [Concomitant]
  5. BONIVA [Concomitant]
  6. ADVAIR DISKUS 100/50 [Concomitant]
  7. OXYGEN [Concomitant]

REACTIONS (2)
  - INCREASED UPPER AIRWAY SECRETION [None]
  - PHARYNGOLARYNGEAL PAIN [None]
